FAERS Safety Report 22227253 (Version 1)
Quarter: 2023Q2

REPORT INFORMATION
  Report Type: Report from Study
  Country: US (occurrence: US)
  Receive Date: 20230419
  Receipt Date: 20230419
  Transmission Date: 20230722
  Serious: Yes (Hospitalization, Other)
  Sender: FDA-Public Use
  Company Number: US-UCBSA-2022053746

PATIENT
  Sex: Male

DRUGS (6)
  1. FINTEPLA [Suspect]
     Active Substance: FENFLURAMINE
     Indication: Product used for unknown indication
     Dosage: 5.6 MILLILITER, 2X/DAY (BID)
     Dates: start: 20220815
  2. FINTEPLA [Suspect]
     Active Substance: FENFLURAMINE
     Dosage: REDUCED DOSE
  3. FINTEPLA [Suspect]
     Active Substance: FENFLURAMINE
     Dosage: 5.6 MILLILITER, 2X/DAY (BID)
  4. FINTEPLA [Suspect]
     Active Substance: FENFLURAMINE
     Dosage: 5.6 MILLILITER, 2X/DAY (BID)
  5. FINTEPLA [Suspect]
     Active Substance: FENFLURAMINE
     Dosage: 5.6 MILLILITER, 2X/DAY (BID)
     Dates: start: 20220815
  6. FINTEPLA [Suspect]
     Active Substance: FENFLURAMINE
     Dosage: 5.6 MILLILITER, 2X/DAY (BID)

REACTIONS (10)
  - Seizure [Not Recovered/Not Resolved]
  - Medical device battery replacement [Not Recovered/Not Resolved]
  - Crying [Recovering/Resolving]
  - Agitation [Not Recovered/Not Resolved]
  - Irritability [Not Recovered/Not Resolved]
  - Attention-seeking behaviour [Recovering/Resolving]
  - Anger [Not Recovered/Not Resolved]
  - Diarrhoea [Recovering/Resolving]
  - Abnormal behaviour [Not Recovered/Not Resolved]
  - Drug ineffective [Unknown]

NARRATIVE: CASE EVENT DATE: 20220101
